FAERS Safety Report 18082534 (Version 2)
Quarter: 2020Q3

REPORT INFORMATION
  Report Type: Spontaneous
  Country: US (occurrence: US)
  Receive Date: 20200729
  Receipt Date: 20200828
  Transmission Date: 20201103
  Serious: Yes (Hospitalization)
  Sender: FDA-Public Use
  Company Number: US-ROCHE-2648482

PATIENT
  Sex: Female

DRUGS (1)
  1. ESBRIET [Suspect]
     Active Substance: PIRFENIDONE
     Indication: ILL-DEFINED DISORDER
     Route: 048

REACTIONS (7)
  - Lethargy [Unknown]
  - Off label use [Unknown]
  - Incoherent [Unknown]
  - Asthenia [Unknown]
  - Malaise [Unknown]
  - Intentional product use issue [Unknown]
  - Gastric disorder [Unknown]
